FAERS Safety Report 9376350 (Version 1)
Quarter: 2013Q3

REPORT INFORMATION
  Report Type: Spontaneous
  Country: FR (occurrence: FR)
  Receive Date: 20130701
  Receipt Date: 20130701
  Transmission Date: 20140515
  Serious: Yes (Death)
  Sender: FDA-Public Use
  Company Number: FR-BRISTOL-MYERS SQUIBB COMPANY-19043017

PATIENT
  Age: 75 Year
  Sex: Male

DRUGS (10)
  1. COUMADIN TABS 2 MG [Suspect]
     Dosage: TOOK 4X1/D FOR 5 DAYS FROM 27FEB2013 TO 03MAR2013
     Route: 048
     Dates: start: 20130304
  2. DAFALGAN [Suspect]
     Dosage: CAPSULES
  3. LOVENOX [Suspect]
     Dosage: 1DF-10000 ANTI-XA/1ML SOLN FOR INJ IN PREFILLED SYRINGE
     Route: 058
     Dates: start: 20130226, end: 20130304
  4. SEROPLEX [Suspect]
     Dosage: TABLETS
     Dates: start: 20130227
  5. TOPALGIC [Suspect]
     Dosage: CAPSULE
     Dates: start: 20130227
  6. LASILIX RETARD [Concomitant]
     Route: 048
  7. INEGY [Concomitant]
     Dosage: 1 DF - 10MG/20MG TABLET
  8. JANUMET [Concomitant]
     Dosage: 1 DF - 50MG/1000MG TABLET
  9. PARIET [Concomitant]
     Dosage: TABLETS
  10. SPIRIVA [Concomitant]
     Dosage: 1DF - 18 MICRO G, POWDER FOR INHALATION IN HARD CAPSULE

REACTIONS (3)
  - Intra-abdominal haematoma [Fatal]
  - Acute coronary syndrome [Fatal]
  - Staphylococcal sepsis [Fatal]
